FAERS Safety Report 9690162 (Version 1)
Quarter: 2013Q4

REPORT INFORMATION
  Report Type: Report from Study
  Country: DK (occurrence: DK)
  Receive Date: 20131115
  Receipt Date: 20131115
  Transmission Date: 20140711
  Serious: Yes (Hospitalization)
  Sender: FDA-Public Use
  Company Number: PHHO2013DK014776

PATIENT
  Sex: 0

DRUGS (6)
  1. CGS 20267 [Suspect]
     Indication: BREAST CANCER
     Dosage: 2.5 MG, QD
     Route: 048
     Dates: start: 20110405
  2. SIMVASTATIN [Concomitant]
     Dosage: 40 MG, QD
     Route: 048
     Dates: start: 20090501
  3. SELOZOK [Concomitant]
     Dosage: 25 MG, QD
     Route: 048
     Dates: start: 20120109
  4. METFORMIN [Concomitant]
     Dosage: 1000 MG, UNK
     Route: 048
     Dates: start: 20090501
  5. TAFIL [Concomitant]
     Dosage: 0.125 MG, QD
     Route: 048
     Dates: start: 20060109
  6. CALCIUM + VITAMIN D                /01483701/ [Concomitant]
     Dosage: 800 MG, QD
     Route: 048
     Dates: start: 20090202

REACTIONS (1)
  - Atrial flutter [Recovered/Resolved]
